FAERS Safety Report 7407171-3 (Version None)
Quarter: 2011Q2

REPORT INFORMATION
  Report Type: 
  Country: None (occurrence: None)
  Receive Date: 20110411
  Receipt Date: 20110401
  Transmission Date: 20111010
  Serious: Yes (Hospitalization, Other)
  Sender: FDA-Public Use
  Company Number: GB-ABBOTT-11P-167-0712919-00

PATIENT
  Age: 50 Year
  Sex: Female

DRUGS (4)
  1. CLOZARIL [Interacting]
     Indication: SCHIZOPHRENIA
     Dosage: 50MG MANE AND 300MG NOCTE
     Route: 048
     Dates: start: 19970402
  2. AMISULPRIDE [Concomitant]
     Indication: SCHIZOPHRENIA
     Route: 048
  3. CLARITHROMYCIN [Suspect]
     Indication: LOWER RESPIRATORY TRACT INFECTION
     Route: 065
     Dates: end: 20110113
  4. REBOXETINE [Concomitant]
     Indication: SCHIZOPHRENIA
     Dosage: 6MG MANE 4MG NOCTE
     Route: 048

REACTIONS (1)
  - DRUG INTERACTION [None]
